FAERS Safety Report 5742614-2 (Version None)
Quarter: 2008Q2

REPORT INFORMATION
  Report Type: 
  Country: None (occurrence: None)
  Receive Date: 20080519
  Receipt Date: 20080515
  Transmission Date: 20081010
  Serious: Yes (Hospitalization)
  Sender: FDA-Public Use
  Company Number: US-BRISTOL-MYERS SQUIBB COMPANY-14194468

PATIENT
  Sex: Male

DRUGS (2)
  1. COUMADIN [Suspect]
  2. ASPIRIN [Suspect]

REACTIONS (1)
  - MYOCARDIAL INFARCTION [None]
